FAERS Safety Report 4798238-7 (Version None)
Quarter: 2005Q4

REPORT INFORMATION
  Report Type: 
  Country: None (occurrence: None)
  Receive Date: 20051011
  Receipt Date: 20051011
  Transmission Date: 20060501
  Serious: Yes (Other)
  Sender: FDA-Public Use
  Company Number: None

PATIENT
  Age: 56 Year
  Sex: Female

DRUGS (4)
  1. DOCETAXEL [Suspect]
     Indication: BREAST CANCER STAGE II
     Dosage: 100MG/M2
     Dates: start: 19991216
  2. ADRIAMYCIN PFS [Suspect]
     Dosage: 60MG/M2
  3. CYTOXAN [Suspect]
     Dosage: 600MG/M2
  4. TAXOTERE XT [Concomitant]

REACTIONS (9)
  - ALOPECIA [None]
  - ARTHRALGIA [None]
  - BLOOD PRESSURE ORTHOSTATIC [None]
  - CANDIDIASIS [None]
  - HAIR GROWTH ABNORMAL [None]
  - HYPOAESTHESIA [None]
  - ONYCHOMADESIS [None]
  - PALMAR-PLANTAR ERYTHRODYSAESTHESIA SYNDROME [None]
  - RASH [None]
